FAERS Safety Report 7014653-5 (Version None)
Quarter: 2010Q3

REPORT INFORMATION
  Report Type: 
  Country: None (occurrence: None)
  Receive Date: 20100922
  Receipt Date: 20100909
  Transmission Date: 20110219
  Serious: No
  Sender: FDA-Public Use
  Company Number: 009336

PATIENT
  Sex: Male

DRUGS (1)
  1. LACOSAMIDE [Suspect]
     Indication: CONVULSION
     Dosage: (50 MG), (100 MG), (150 MG), (DOSE REDUCTION)

REACTIONS (1)
  - ATRIOVENTRICULAR BLOCK [None]
